FAERS Safety Report 7888330-2 (Version None)
Quarter: 2011Q4

REPORT INFORMATION
  Report Type: 
  Country: None (occurrence: None)
  Receive Date: 20111103
  Receipt Date: 20111024
  Transmission Date: 20120403
  Serious: Yes (Hospitalization)
  Sender: FDA-Public Use
  Company Number: US-BAYER-200926420NA

PATIENT
  Age: 32 Year
  Sex: Female
  Weight: 70 kg

DRUGS (11)
  1. VITAMIN D [Concomitant]
  2. DAYPRO [Concomitant]
  3. YAZ [Suspect]
  4. ASCORBIC ACID [Concomitant]
  5. ANTIMIGRAINE PREPARATIONS [Concomitant]
  6. DARVOCET-N 50 [Concomitant]
  7. YAZ [Suspect]
     Indication: ORAL CONTRACEPTION
     Dosage: 1 DF (DAILY DOSE), QD, ORAL
     Route: 048
     Dates: start: 20080301, end: 20080718
  8. YAZ [Suspect]
     Indication: ACNE
  9. YAZ [Suspect]
     Indication: PREMENSTRUAL SYNDROME
  10. MULTI-VITAMIN [Concomitant]
  11. CALCIUM [Concomitant]

REACTIONS (10)
  - PULMONARY FIBROSIS [None]
  - DEEP VEIN THROMBOSIS [None]
  - PAIN [None]
  - EMOTIONAL DISTRESS [None]
  - PAIN IN EXTREMITY [None]
  - ANXIETY [None]
  - PULMONARY EMBOLISM [None]
  - DYSPNOEA [None]
  - CHEST PAIN [None]
  - ASTHMA [None]
